FAERS Safety Report 23493251 (Version 1)
Quarter: 2024Q1

REPORT INFORMATION
  Report Type: Spontaneous
  Country: US (occurrence: None)
  Receive Date: 20240207
  Receipt Date: 20240207
  Transmission Date: 20240409
  Serious: Yes (Hospitalization)
  Sender: FDA-Public Use
  Company Number: 2024A026849

PATIENT

DRUGS (9)
  1. CALQUENCE [Suspect]
     Active Substance: ACALABRUTINIB
     Route: 048
  2. VYNDAMAX [Suspect]
     Active Substance: TAFAMIDIS
     Indication: Cardiac disorder
     Dates: start: 202310
  3. ELIQUIS [Concomitant]
     Active Substance: APIXABAN
  4. FAMOTIDINE [Concomitant]
     Active Substance: FAMOTIDINE
  5. KLOR-KON [Concomitant]
  6. ISOSORBIDE MONONITRATE [Concomitant]
     Active Substance: ISOSORBIDE MONONITRATE
  7. FINASTERIDE [Concomitant]
     Active Substance: FINASTERIDE
  8. VALSARTAN [Concomitant]
     Active Substance: VALSARTAN
  9. METOPROLOL SUCCINATE [Concomitant]
     Active Substance: METOPROLOL SUCCINATE

REACTIONS (8)
  - Skin laceration [Unknown]
  - Haemorrhage [Unknown]
  - Blood blister [Unknown]
  - Skin discolouration [Unknown]
  - Swelling [Unknown]
  - Back pain [Unknown]
  - Musculoskeletal stiffness [Unknown]
  - Somnolence [Unknown]

NARRATIVE: CASE EVENT DATE: 20231001
